FAERS Safety Report 11906506 (Version 1)
Quarter: 2016Q1

REPORT INFORMATION
  Report Type: Spontaneous
  Country: US (occurrence: None)
  Receive Date: 20160108
  Receipt Date: 20160108
  Transmission Date: 20160526
  Serious: No
  Sender: FDA-Public Use
  Company Number: None

PATIENT
  Age: 21 Year
  Sex: Female
  Weight: 58.06 kg

DRUGS (2)
  1. LUPRON DEPOT [Suspect]
     Active Substance: LEUPROLIDE ACETATE
     Indication: ENDOMETRIOSIS
     Dosage: ONE EVERY 3 MONTHS
     Route: 030
     Dates: start: 20150812, end: 20151217
  2. TOPAMAX [Concomitant]
     Active Substance: TOPIRAMATE

REACTIONS (13)
  - Depression [None]
  - Dyspnoea [None]
  - Weight increased [None]
  - Migraine [None]
  - Headache [None]
  - Arthralgia [None]
  - Drug ineffective [None]
  - Hot flush [None]
  - Feeling abnormal [None]
  - Alopecia [None]
  - Mood swings [None]
  - Night sweats [None]
  - Amnesia [None]

NARRATIVE: CASE EVENT DATE: 20160107
